FAERS Safety Report 14689971 (Version 1)
Quarter: 2018Q1

REPORT INFORMATION
  Report Type: Spontaneous
  Country: US (occurrence: US)
  Receive Date: 20180327
  Receipt Date: 20180327
  Transmission Date: 20180509
  Serious: Yes (Hospitalization)
  Sender: FDA-Public Use
  Company Number: None

PATIENT
  Age: 40 Year
  Sex: Male

DRUGS (6)
  1. XANAX XR 1 MG [Concomitant]
  2. FAMOTIDINE 40MG [Concomitant]
     Active Substance: FAMOTIDINE
  3. HARVONI [Suspect]
     Active Substance: LEDIPASVIR\SOFOSBUVIR
     Indication: HEPATITIS C
     Route: 048
     Dates: start: 20171206
  4. LORAZEPAM 1MG [Concomitant]
     Active Substance: LORAZEPAM
  5. CLONIDINE 0.1MG [Concomitant]
     Active Substance: CLONIDINE
  6. TRAZODONE [Concomitant]
     Active Substance: TRAZODONE HYDROCHLORIDE

REACTIONS (3)
  - Panic attack [None]
  - Anxiety [None]
  - Drug dose omission [None]

NARRATIVE: CASE EVENT DATE: 20180317
